FAERS Safety Report 17530112 (Version 2)
Quarter: 2020Q1

REPORT INFORMATION
  Report Type: Spontaneous
  Country: RO (occurrence: RO)
  Receive Date: 20200311
  Receipt Date: 20200323
  Transmission Date: 20200409
  Serious: Yes (Other)
  Sender: FDA-Public Use
  Company Number: RO-JNJFOC-20200244040

PATIENT
  Age: 67 Year
  Sex: Male

DRUGS (2)
  1. REMICADE [Suspect]
     Active Substance: INFLIXIMAB
     Indication: HYPERGAMMAGLOBULINAEMIA BENIGN MONOCLONAL
     Dosage: THE RESPONSE WAS GOOD, BUT SUSTAINED ONLY FOR 9 MONTHS
     Route: 042
  2. ETANERCEPT [Concomitant]
     Active Substance: ETANERCEPT
     Indication: HYPERGAMMAGLOBULINAEMIA BENIGN MONOCLONAL

REACTIONS (3)
  - Basal cell carcinoma [Recovering/Resolving]
  - Off label use [Unknown]
  - Product use in unapproved indication [Unknown]
